FAERS Safety Report 7496095-1 (Version None)
Quarter: 2011Q2

REPORT INFORMATION
  Report Type: 
  Country: None (occurrence: None)
  Receive Date: 20110523
  Receipt Date: 20110503
  Transmission Date: 20111010
  Serious: Yes (Hospitalization)
  Sender: FDA-Public Use
  Company Number: US-SANOFI-AVENTIS-2011SA027060

PATIENT
  Age: 63 Year
  Sex: Male

DRUGS (8)
  1. ACTOS [Concomitant]
  2. SOLOSTAR [Suspect]
     Dates: start: 20080101
  3. LANTUS [Suspect]
     Dosage: DOSE:55 UNIT(S)
     Route: 058
     Dates: start: 20080101
  4. SOLOSTAR [Suspect]
     Dates: start: 20080101
  5. LANTUS [Suspect]
     Indication: TYPE 2 DIABETES MELLITUS
     Dosage: DOSE:55 UNIT(S)
     Route: 058
     Dates: start: 20080101
  6. SOLOSTAR [Suspect]
     Indication: TYPE 2 DIABETES MELLITUS
     Dates: start: 20080101
  7. AMARYL [Concomitant]
  8. LANTUS [Suspect]
     Dosage: DOSE:55 UNIT(S)
     Route: 058
     Dates: start: 20080101

REACTIONS (4)
  - BLOOD GLUCOSE INCREASED [None]
  - INCORRECT STORAGE OF DRUG [None]
  - MYOCARDIAL INFARCTION [None]
  - PRODUCT QUALITY ISSUE [None]
